FAERS Safety Report 19588736 (Version 1)
Quarter: 2021Q3

REPORT INFORMATION
  Report Type: Spontaneous
  Country: US (occurrence: US)
  Receive Date: 20210721
  Receipt Date: 20210721
  Transmission Date: 20211014
  Serious: Yes (Other)
  Sender: FDA-Public Use
  Company Number: US-SUN PHARMACEUTICAL INDUSTRIES LTD-2021R1-304741

PATIENT
  Age: 29 Year
  Sex: Female

DRUGS (1)
  1. TADALAFIL. [Suspect]
     Active Substance: TADALAFIL
     Indication: AORTICOPULMONARY SEPTAL DEFECT
     Dosage: 20 MILLIGRAM, DAILY
     Route: 048
     Dates: start: 2013

REACTIONS (1)
  - Right-to-left cardiac shunt [Recovering/Resolving]
